FAERS Safety Report 4983380-8 (Version None)
Quarter: 2006Q2

REPORT INFORMATION
  Report Type: 
  Country: None (occurrence: None)
  Receive Date: 20060426
  Receipt Date: 20050927
  Transmission Date: 20061013
  Serious: Yes (Hospitalization, Disabling)
  Sender: FDA-Public Use
  Company Number: US-MERCK-0509USA04016

PATIENT
  Age: 58 Year
  Sex: Male
  Weight: 127 kg

DRUGS (5)
  1. VIOXX [Suspect]
     Indication: SYNOVITIS
     Route: 048
     Dates: start: 20010401, end: 20010425
  2. VIOXX [Suspect]
     Route: 048
     Dates: start: 20010401, end: 20020401
  3. VIOXX [Suspect]
     Indication: ARTHRITIS
     Route: 048
     Dates: start: 20010401, end: 20010425
  4. VIOXX [Suspect]
     Route: 048
     Dates: start: 20010401, end: 20020401
  5. ASPIRIN [Concomitant]
     Route: 065

REACTIONS (13)
  - ABDOMINAL PAIN UPPER [None]
  - ACUTE MYOCARDIAL INFARCTION [None]
  - ARTERIOSCLEROSIS CORONARY ARTERY [None]
  - ATRIAL TACHYCARDIA [None]
  - BLOOD GLUCOSE INCREASED [None]
  - COAGULOPATHY [None]
  - DYSPEPSIA [None]
  - FLATULENCE [None]
  - HIATUS HERNIA [None]
  - HYPERCHOLESTEROLAEMIA [None]
  - HYPERTENSION [None]
  - PARAESTHESIA [None]
  - POST PROCEDURAL HAEMATOMA [None]
